FAERS Safety Report 6776182-3 (Version None)
Quarter: 2010Q2

REPORT INFORMATION
  Report Type: 
  Country: None (occurrence: None)
  Receive Date: 20100617
  Receipt Date: 20100609
  Transmission Date: 20101027
  Serious: Yes (Death)
  Sender: FDA-Public Use
  Company Number: US-AMGEN-QUU406199

PATIENT
  Sex: Female
  Weight: 47.7 kg

DRUGS (9)
  1. NPLATE [Suspect]
     Indication: IDIOPATHIC THROMBOCYTOPENIC PURPURA
     Route: 058
     Dates: start: 20100319, end: 20100325
  2. ULTRAM [Concomitant]
  3. ATIVAN [Concomitant]
  4. TYLENOL [Concomitant]
  5. CLOTRIMAZOLE [Concomitant]
  6. ROBITUSSIN [Concomitant]
  7. MORPHINE [Concomitant]
     Dates: start: 20100407
  8. LORTAB [Concomitant]
     Dates: start: 20100401
  9. AMICAR [Concomitant]
     Dates: start: 20100401

REACTIONS (1)
  - IDIOPATHIC THROMBOCYTOPENIC PURPURA [None]
